FAERS Safety Report 4539403-3 (Version None)
Quarter: 2004Q4

REPORT INFORMATION
  Report Type: 
  Country: None (occurrence: None)
  Receive Date: 20041227
  Receipt Date: 20041227
  Transmission Date: 20050328
  Serious: Yes (Death, Life-Threatening, Hospitalization)
  Sender: FDA-Public Use
  Company Number: None

PATIENT
  Sex: Male
  Weight: 16 kg

DRUGS (9)
  1. DEXAMETHASONE [Suspect]
     Indication: ACUTE LYMPHOCYTIC LEUKAEMIA
     Dosage: 2.2 MG O BID
     Route: 048
     Dates: start: 20041105, end: 20041203
  2. L-ASPARAGINASE (E.COLI) [Concomitant]
  3. VINCRISTINE [Concomitant]
  4. METHOTREXATE [Concomitant]
  5. RANITIDINE [Concomitant]
  6. COTRIM [Concomitant]
  7. ... [Concomitant]
  8. NYSTATIN [Concomitant]
  9. CYTARABINE [Concomitant]

REACTIONS (9)
  - ABDOMINAL DISTENSION [None]
  - BOWEL SOUNDS ABNORMAL [None]
  - ELECTROLYTE IMBALANCE [None]
  - HAEMATOCHEZIA [None]
  - HYPOTENSION [None]
  - PLATELET COUNT DECREASED [None]
  - PNEUMONIA [None]
  - RESPIRATORY DISORDER [None]
  - SEPSIS [None]
